FAERS Safety Report 5377574-X (Version None)
Quarter: 2007Q3

REPORT INFORMATION
  Report Type: 
  Country: None (occurrence: None)
  Receive Date: 20070703
  Receipt Date: 20070621
  Transmission Date: 20080115
  Serious: Yes (Hospitalization)
  Sender: FDA-Public Use
  Company Number: GB-PFIZER INC-2007051442

PATIENT
  Sex: Male

DRUGS (3)
  1. DETRUSITOL XL [Suspect]
     Indication: URINARY INCONTINENCE
  2. VIAGRA [Suspect]
  3. ALFUZOSIN HYDROCHLORIDE [Concomitant]

REACTIONS (2)
  - INCONTINENCE [None]
  - PROSTATE CANCER [None]
